FAERS Safety Report 11874023 (Version 1)
Quarter: 2015Q4

REPORT INFORMATION
  Report Type: Report from Study
  Country: US (occurrence: US)
  Receive Date: 20151229
  Receipt Date: 20151229
  Transmission Date: 20160305
  Serious: No
  Sender: FDA-Public Use
  Company Number: PHEH2014US012939

PATIENT
  Age: 64 Year
  Sex: Female

DRUGS (3)
  1. SANDIMMUN [Suspect]
     Active Substance: CYCLOSPORINE
     Indication: ORGAN TRANSPLANT
     Dosage: 100 MG, AM
     Route: 048
  2. SANDIMMUN [Suspect]
     Active Substance: CYCLOSPORINE
     Dosage: 225 MG, QD
     Route: 065
  3. SANDIMMUN [Suspect]
     Active Substance: CYCLOSPORINE
     Dosage: 125 MG, PM
     Route: 048

REACTIONS (1)
  - Influenza [Unknown]

NARRATIVE: CASE EVENT DATE: 20150109
